FAERS Safety Report 14288363 (Version 3)
Quarter: 2018Q1

REPORT INFORMATION
  Report Type: Spontaneous
  Country: US (occurrence: US)
  Receive Date: 20171215
  Receipt Date: 20180125
  Transmission Date: 20180509
  Serious: No
  Sender: FDA-Public Use
  Company Number: US-TEVA-2017-US-829373

PATIENT
  Age: 69 Year
  Sex: Male

DRUGS (1)
  1. MUCUS (GUAIFENESIN) PROLONGED RELEASE [Suspect]
     Active Substance: GUAIFENESIN
     Indication: PRODUCTIVE COUGH
     Dosage: 2400 MILLIGRAM DAILY; EVERY 12 HOURS
     Route: 065
     Dates: start: 20171101, end: 20171105

REACTIONS (1)
  - Drug ineffective [Unknown]
